FAERS Safety Report 11459683 (Version 1)
Quarter: 2015Q3

REPORT INFORMATION
  Report Type: Spontaneous
  Country: US (occurrence: US)
  Receive Date: 20150904
  Receipt Date: 20150904
  Transmission Date: 20151125
  Serious: Yes (Other)
  Sender: FDA-Public Use
  Company Number: US-TAKEDA-2014TUS006880

PATIENT

DRUGS (7)
  1. METFORMIN [Concomitant]
     Active Substance: METFORMIN HYDROCHLORIDE
     Dosage: 1500 MG, UNK
     Dates: start: 200302
  2. GLUCOPHAGE [Concomitant]
     Active Substance: METFORMIN HYDROCHLORIDE
     Dosage: 1500 MG, UNK
     Dates: start: 1983, end: 200211
  3. GLUCOTROL [Concomitant]
     Active Substance: GLIPIZIDE
     Dosage: 10 MG, UNK
     Dates: start: 2006
  4. ACTOS [Suspect]
     Active Substance: PIOGLITAZONE HYDROCHLORIDE
     Indication: TYPE 2 DIABETES MELLITUS
     Dosage: 15 MG, 30 MG, 45 MG, UNK
     Route: 048
     Dates: start: 200011, end: 200709
  5. LANTUS [Concomitant]
     Active Substance: INSULIN GLARGINE
     Dosage: 80 IU, UNK
     Dates: start: 2001
  6. BYETTA [Concomitant]
     Active Substance: EXENATIDE
     Dosage: 10 MCG, UNK
     Dates: start: 200605, end: 2012
  7. BYDUREON [Concomitant]
     Active Substance: EXENATIDE
     Indication: DIABETES MELLITUS
     Dosage: 2 MG, UNK
     Dates: start: 2012

REACTIONS (1)
  - Bladder cancer [Unknown]

NARRATIVE: CASE EVENT DATE: 20040727
